FAERS Safety Report 5441753-3 (Version None)
Quarter: 2007Q3

REPORT INFORMATION
  Report Type: 
  Country: None (occurrence: None)
  Receive Date: 20070829
  Receipt Date: 20070829
  Transmission Date: 20080115
  Serious: Yes (Hospitalization)
  Sender: FDA-Public Use
  Company Number: None

PATIENT
  Age: 79 Year
  Sex: Male

DRUGS (1)
  1. DIGOXIN [Suspect]
     Indication: ATRIAL FIBRILLATION
     Dosage: 0.25MG EVERY DAY PO
     Route: 048
     Dates: start: 19970314, end: 20070824

REACTIONS (4)
  - ABDOMINAL PAIN UPPER [None]
  - BRADYCARDIA [None]
  - DEHYDRATION [None]
  - DIARRHOEA [None]
